FAERS Safety Report 22631317 (Version 1)
Quarter: 2023Q2

REPORT INFORMATION
  Report Type: Spontaneous
  Country: CN (occurrence: CN)
  Receive Date: 20230623
  Receipt Date: 20230623
  Transmission Date: 20230721
  Serious: Yes (Other)
  Sender: FDA-Public Use
  Company Number: CN-002147023-NVSC2023CN139199

PATIENT
  Age: 4 Year
  Sex: Female

DRUGS (6)
  1. OXCARBAZEPINE [Suspect]
     Active Substance: OXCARBAZEPINE
     Indication: Febrile infection-related epilepsy syndrome
     Dosage: 150MG EVERY NIGHT
     Route: 048
  2. OXCARBAZEPINE [Suspect]
     Active Substance: OXCARBAZEPINE
     Dosage: 150MG IN THE MORNING AND 150MG IN THE EVENING
     Route: 048
  3. OXCARBAZEPINE [Suspect]
     Active Substance: OXCARBAZEPINE
     Dosage: 150MG IN THE MORNING AND 300MG IN THE EVENING
     Route: 048
  4. OXCARBAZEPINE [Suspect]
     Active Substance: OXCARBAZEPINE
     Dosage: 300 MG IN THE MORNING AND 300MG IN THE EVENING
     Route: 048
  5. OXCARBAZEPINE [Suspect]
     Active Substance: OXCARBAZEPINE
     Dosage: DOSE REDUCED
     Route: 065
  6. VALPROATE SODIUM [Concomitant]
     Active Substance: VALPROATE SODIUM
     Indication: Febrile infection-related epilepsy syndrome
     Dosage: 250MG IN THE MORNING AND 250MG IN THE EVENING
     Route: 065
     Dates: start: 2017, end: 2018

REACTIONS (3)
  - Febrile infection-related epilepsy syndrome [Recovering/Resolving]
  - Condition aggravated [Recovering/Resolving]
  - Product use issue [Unknown]
